FAERS Safety Report 23773883 (Version 4)
Quarter: 2024Q4

REPORT INFORMATION
  Report Type: Report from Study
  Country: KR (occurrence: KR)
  Receive Date: 20240423
  Receipt Date: 20241017
  Transmission Date: 20250115
  Serious: Yes (Hospitalization, Other)
  Sender: BAXTER
  Company Number: KR-BAXTER-2024BAX016929

PATIENT
  Age: 70 Year
  Sex: Male
  Weight: 57.4 kg

DRUGS (17)
  1. DOXORUBICIN [Suspect]
     Active Substance: DOXORUBICIN
     Indication: Diffuse large B-cell lymphoma stage IV
     Dosage: 82.5 MG, EVERY 3 WEEKS
     Route: 042
     Dates: start: 20240220, end: 20240404
  2. DOXORUBICIN [Suspect]
     Active Substance: DOXORUBICIN
     Dosage: 61.8 MG, EVERY 3 WEEKS, ONGOING
     Route: 042
     Dates: start: 20240425
  3. CYCLOPHOSPHAMIDE [Suspect]
     Active Substance: CYCLOPHOSPHAMIDE
     Indication: Diffuse large B-cell lymphoma stage IV
     Dosage: 1237.5 MG, EVERY 3 WEEKS
     Route: 042
     Dates: start: 20240220, end: 20240404
  4. CYCLOPHOSPHAMIDE [Suspect]
     Active Substance: CYCLOPHOSPHAMIDE
     Dosage: 928.1 MG, EVERY 3 WEEKS, ONGOING
     Route: 042
     Dates: start: 20240425
  5. EPCORITAMAB [Suspect]
     Active Substance: EPCORITAMAB
     Indication: Diffuse large B-cell lymphoma stage IV
     Dosage: 48 MG C1 (STEP-UP), CYCLES 2 - 4 (21-DAY CYCLE, WEEKLY DOSE), C5 - 8 (21-DAY CYCLE, EVERY 3 WEEKS) P
     Route: 058
     Dates: start: 20240220, end: 20240404
  6. EPCORITAMAB [Suspect]
     Active Substance: EPCORITAMAB
     Dosage: 48 MG, EVERY 1 WEEKS
     Route: 058
     Dates: start: 20240418
  7. VINCRISTINE [Suspect]
     Active Substance: VINCRISTINE
     Indication: Diffuse large B-cell lymphoma stage IV
     Dosage: 2 MG, EVERY 3 WEEKS, ONGOING
     Route: 042
     Dates: start: 20240220
  8. RITUXIMAB [Suspect]
     Active Substance: RITUXIMAB
     Indication: Diffuse large B-cell lymphoma stage IV
     Dosage: 618.75 MG, EVERY 3 WEEKS, ONGOING
     Route: 042
     Dates: start: 20240220
  9. PREDNISONE [Suspect]
     Active Substance: PREDNISONE
     Indication: Diffuse large B-cell lymphoma stage IV
     Dosage: 100 MG C1-6, D1-5, EVERY 1 DAYS, ONGOING
     Route: 048
     Dates: start: 20240220
  10. KLENZO [Concomitant]
     Indication: Prophylaxis
     Dosage: 1000 ML, AS NECESSARY
     Route: 065
     Dates: start: 20240219
  11. Phenil [Concomitant]
     Indication: Antiallergic therapy
     Dosage: 2 ML, EVERY 1 WEEKS
     Route: 065
     Dates: start: 20240220
  12. AXID [Concomitant]
     Active Substance: NIZATIDINE
     Indication: Gastritis prophylaxis
     Dosage: 150 MG, 2/DAYS
     Route: 065
     Dates: start: 20240220
  13. VIREAD [Concomitant]
     Active Substance: TENOFOVIR DISOPROXIL FUMARATE
     Indication: Antiviral prophylaxis
     Dosage: 1 DOSAGE FORM, EVERY 1 DAYS
     Route: 065
     Dates: start: 20240220
  14. SULFAMETHOXAZOLE\TRIMETHOPRIM [Concomitant]
     Active Substance: SULFAMETHOXAZOLE\TRIMETHOPRIM
     Indication: Infection prophylaxis
     Dosage: 1 DOSAGE FORM, EVERY 1 DAYS
     Route: 065
     Dates: start: 20240220
  15. ZYPREXA ZYDIS [Concomitant]
     Active Substance: OLANZAPINE
     Indication: Nausea
     Dosage: 5 MG, AS NECESSARY
     Route: 065
     Dates: start: 20240321
  16. NEULAPEG [Concomitant]
     Indication: Prophylaxis
     Dosage: 6 MG, TOTAL
     Dates: start: 20240315, end: 20240315
  17. SODIUM BICARBONATE [Concomitant]
     Active Substance: SODIUM BICARBONATE
     Indication: Prophylaxis
     Dosage: 4 G, AS NECESSARY
     Route: 065
     Dates: start: 20240219

REACTIONS (1)
  - Febrile neutropenia [Recovered/Resolved]

NARRATIVE: CASE EVENT DATE: 20240411
